FAERS Safety Report 5789415-7 (Version None)
Quarter: 2008Q2

REPORT INFORMATION
  Report Type: 
  Country: None (occurrence: None)
  Receive Date: 20080626
  Receipt Date: 20080114
  Transmission Date: 20081010
  Serious: No
  Sender: FDA-Public Use
  Company Number: US-ASTRAZENECA-2008UW01037

PATIENT
  Age: 3 Year
  Sex: Male

DRUGS (3)
  1. PULMICORT RESPULES [Suspect]
     Indication: INFLAMMATION
     Route: 055
     Dates: start: 20071210
  2. PULMICORT RESPULES [Suspect]
     Indication: LUNG DISORDER
     Route: 055
     Dates: start: 20071210
  3. ALBUTEROL [Concomitant]

REACTIONS (4)
  - DIARRHOEA [None]
  - NIGHT SWEATS [None]
  - PYREXIA [None]
  - SKIN ODOUR ABNORMAL [None]
